FAERS Safety Report 6335351-7 (Version None)
Quarter: 2009Q3

REPORT INFORMATION
  Report Type: 
  Country: None (occurrence: None)
  Receive Date: 20090831
  Receipt Date: 20090817
  Transmission Date: 20100115
  Serious: Yes (Other)
  Sender: FDA-Public Use
  Company Number: US-ELI_LILLY_AND_COMPANY-US200908003766

PATIENT
  Sex: Female

DRUGS (6)
  1. CYMBALTA [Suspect]
     Indication: DEPRESSION
     Dosage: 60 MG, UNKNOWN
     Route: 065
     Dates: end: 20090707
  2. CYMBALTA [Suspect]
     Dosage: 90 MG, UNKNOWN
     Route: 065
     Dates: start: 20090708
  3. CYMBALTA [Suspect]
     Dosage: 60 MG, UNKNOWN
     Route: 065
  4. WELLBUTRIN [Concomitant]
     Dosage: UNK, UNKNOWN
     Route: 065
  5. NEURONTIN [Concomitant]
     Dosage: UNK, UNKNOWN
     Route: 065
  6. KLONOPIN [Concomitant]
     Dosage: UNK, UNKNOWN
     Route: 065

REACTIONS (10)
  - DIZZINESS [None]
  - EYE MOVEMENT DISORDER [None]
  - HYPERSOMNIA [None]
  - IMPAIRED DRIVING ABILITY [None]
  - INCOHERENT [None]
  - IRRITABILITY [None]
  - LOSS OF CONSCIOUSNESS [None]
  - MYDRIASIS [None]
  - NERVE INJURY [None]
  - NO THERAPEUTIC RESPONSE [None]
